FAERS Safety Report 7936852-8 (Version None)
Quarter: 2011Q4

REPORT INFORMATION
  Report Type: 
  Country: None (occurrence: None)
  Receive Date: 20111123
  Receipt Date: 20111123
  Transmission Date: 20120403
  Serious: Yes (Other)
  Sender: FDA-Public Use
  Company Number: None

PATIENT
  Age: 38 Year
  Sex: Male
  Weight: 90.718 kg

DRUGS (2)
  1. TORADOL [Concomitant]
     Dosage: NOT TOLD
     Route: 042
  2. COMPAZINE [Suspect]
     Indication: MIGRAINE
     Dosage: NOT TOLD
     Route: 042
     Dates: start: 20111019, end: 20111019

REACTIONS (15)
  - DISORIENTATION [None]
  - MENTAL IMPAIRMENT [None]
  - CHEST DISCOMFORT [None]
  - COGNITIVE DISORDER [None]
  - CONFUSIONAL STATE [None]
  - RESTLESSNESS [None]
  - NAUSEA [None]
  - DYSPNOEA [None]
  - BALANCE DISORDER [None]
  - INSOMNIA [None]
  - AGITATION [None]
  - ANXIETY [None]
  - HEART RATE INCREASED [None]
  - FATIGUE [None]
  - SOMNOLENCE [None]
